FAERS Safety Report 5931299-8 (Version None)
Quarter: 2008Q4

REPORT INFORMATION
  Report Type: 
  Country: None (occurrence: None)
  Receive Date: 20081009
  Receipt Date: 20080820
  Transmission Date: 20090506
  Serious: Yes (Other)
  Sender: FDA-Public Use
  Company Number: PHEH2008US06465

PATIENT
  Age: 74 Year
  Sex: Male
  Weight: 83.4 kg

DRUGS (6)
  1. ZOMETA [Suspect]
     Indication: MULTIPLE MYELOMA
     Dosage: 4 MG, QMO, INTRAVENOUS
     Route: 042
     Dates: start: 20080610
  2. ZOMETA [Suspect]
  3. ZOMETA [Suspect]
  4. LEXAPRO [Concomitant]
  5. ASPIRIN [Concomitant]
  6. MULTIVITAMINS (ASCORBIC ACID, ERGOCALCIFEROL, FOLIC ACID, NICOTINAMIDE [Concomitant]

REACTIONS (4)
  - ANAEMIA [None]
  - CHILLS [None]
  - HYPERHIDROSIS [None]
  - PAIN [None]
